FAERS Safety Report 5065399-4 (Version None)
Quarter: 2006Q3

REPORT INFORMATION
  Report Type: 
  Country: None (occurrence: None)
  Receive Date: 20060731
  Receipt Date: 20060724
  Transmission Date: 20061208
  Serious: Yes (Hospitalization)
  Sender: FDA-Public Use
  Company Number: JP-AVENTIS-200612340JP

PATIENT
  Age: 55 Year
  Sex: Female

DRUGS (10)
  1. ARAVA [Suspect]
     Indication: RHEUMATOID ARTHRITIS
     Route: 048
     Dates: start: 20030926, end: 20030928
  2. ARAVA [Suspect]
     Route: 048
     Dates: start: 20030929, end: 20031023
  3. ARAVA [Suspect]
     Route: 048
     Dates: start: 20031024, end: 20040213
  4. ARAVA [Suspect]
     Route: 048
     Dates: start: 20040214
  5. FOSAMAC TABLETS [Concomitant]
  6. MUCOSTA [Concomitant]
  7. VOLTAREN [Concomitant]
  8. RHEUMATREX [Concomitant]
     Indication: RHEUMATOID ARTHRITIS
     Route: 048
     Dates: end: 20030925
  9. RIMATIL [Concomitant]
     Indication: RHEUMATOID ARTHRITIS
     Route: 048
     Dates: end: 20030925
  10. SHIOSOL [Concomitant]
     Indication: RHEUMATOID ARTHRITIS
     Route: 048
     Dates: end: 20030925

REACTIONS (1)
  - OVARIAN CANCER [None]
